FAERS Safety Report 18304480 (Version 3)
Quarter: 2021Q1

REPORT INFORMATION
  Report Type: Spontaneous
  Country: FR (occurrence: FR)
  Receive Date: 20200924
  Receipt Date: 20210128
  Transmission Date: 20210419
  Serious: Yes (Hospitalization)
  Sender: FDA-Public Use
  Company Number: FR-AUROBINDO-AUR-APL-2020-049204

PATIENT
  Age: 92 Year
  Sex: Female

DRUGS (1)
  1. CETIRIZINE ARROW LAB 10 MG FILM COATED TABLETS [Suspect]
     Active Substance: CETIRIZINE HYDROCHLORIDE
     Indication: HYPERSENSITIVITY
     Dosage: 20 MILLIGRAM, ONCE A DAY
     Route: 048
     Dates: start: 20200818, end: 20200901

REACTIONS (2)
  - Rash maculo-papular [Not Recovered/Not Resolved]
  - Rebound effect [Not Recovered/Not Resolved]

NARRATIVE: CASE EVENT DATE: 20200906
